FAERS Safety Report 4621089-0 (Version None)
Quarter: 2005Q1

REPORT INFORMATION
  Report Type: 
  Country: None (occurrence: None)
  Receive Date: 20050325
  Receipt Date: 20050315
  Transmission Date: 20050727
  Serious: Yes (Life-Threatening, Hospitalization, Other)
  Sender: FDA-Public Use
  Company Number: 2003147289FR

PATIENT
  Age: 15 Year
  Sex: Male

DRUGS (4)
  1. SOLU-MEDROL [Suspect]
     Indication: ILL-DEFINED DISORDER
     Dosage: INTRAVENOUS
     Route: 042
     Dates: start: 20020517
  2. ASPARAGINASE (ASPARAGINASE) [Suspect]
     Indication: ILL-DEFINED DISORDER
     Dosage: 10 DOSE, INTRAVENOUS
     Route: 042
     Dates: start: 20020517
  3. DAUNORUBICIN (DAUNORUBICIN) [Concomitant]
  4. VINCRISTINE [Concomitant]

REACTIONS (11)
  - ASCITES [None]
  - CHOLESTASIS [None]
  - DEPRESSION [None]
  - DIABETES MELLITUS [None]
  - DISSEMINATED INTRAVASCULAR COAGULATION [None]
  - PANCREATIC INSUFFICIENCY [None]
  - PANCREATITIS ACUTE [None]
  - PANCREATITIS NECROTISING [None]
  - PLEURAL EFFUSION [None]
  - PSEUDOCYST [None]
  - SHOCK [None]
